FAERS Safety Report 10559454 (Version 2)
Quarter: 2014Q4

REPORT INFORMATION
  Report Type: Spontaneous
  Country: FR (occurrence: None)
  Receive Date: 20141030
  Receipt Date: 20141117
  Transmission Date: 20150529
  Serious: Yes (Death)
  Sender: FDA-Public Use
  Company Number: FR-017476

PATIENT
  Age: 21 Day

DRUGS (1)
  1. PROPESS (PROPESS) 10 MG (NOT SPECIFIED) [Suspect]
     Active Substance: DINOPROSTONE
     Indication: LABOUR INDUCTION
     Dosage: TOTAL
     Route: 064
     Dates: start: 20140807, end: 20140807

REACTIONS (5)
  - Foetal exposure during pregnancy [None]
  - Maternal drugs affecting foetus [None]
  - Apgar score low [None]
  - Foetal heart rate abnormal [None]
  - Death neonatal [None]
